FAERS Safety Report 13030735 (Version 1)
Quarter: 2016Q4

REPORT INFORMATION
  Report Type: Spontaneous
  Country: US (occurrence: US)
  Receive Date: 20161215
  Receipt Date: 20161215
  Transmission Date: 20170207
  Serious: No
  Sender: FDA-Public Use
  Company Number: US-SHIRE-US201618474

PATIENT
  Age: 72 Year
  Sex: Female
  Weight: 68.27 kg

DRUGS (1)
  1. XIIDRA [Suspect]
     Active Substance: LIFITEGRAST
     Indication: PRODUCT USED FOR UNKNOWN INDICATION
     Dosage: 1 GTT (1 DROP IN BOTH EYES), 2X/DAY:BID
     Route: 047
     Dates: start: 20161129

REACTIONS (2)
  - Instillation site reaction [Unknown]
  - Instillation site pain [Unknown]

NARRATIVE: CASE EVENT DATE: 2016
